FAERS Safety Report 5420404-8 (Version None)
Quarter: 2007Q3

REPORT INFORMATION
  Report Type: 
  Country: None (occurrence: None)
  Receive Date: 20070816
  Receipt Date: 20070810
  Transmission Date: 20080115
  Serious: Yes (Hospitalization)
  Sender: FDA-Public Use
  Company Number: SP01519

PATIENT
  Age: 66 Year
  Sex: Female
  Weight: 62.5964 kg

DRUGS (5)
  1. MOVIPREP [Suspect]
     Indication: COLONOSCOPY
     Dosage: ORAL
     Route: 048
     Dates: start: 20070809, end: 20070809
  2. ASPIRIN [Concomitant]
  3. PRENATAL VITAMINS [Concomitant]
  4. CALCIUM CITRATE [Concomitant]
  5. IBANDRONATE SODIUM [Concomitant]

REACTIONS (4)
  - CONVULSION [None]
  - ELECTROLYTE IMBALANCE [None]
  - NONSPECIFIC REACTION [None]
  - WATER INTOXICATION [None]
